FAERS Safety Report 16341110 (Version 1)
Quarter: 2019Q2

REPORT INFORMATION
  Report Type: Spontaneous
  Country: SE (occurrence: SE)
  Receive Date: 20190522
  Receipt Date: 20190522
  Transmission Date: 20190711
  Serious: Yes (Death)
  Sender: FDA-Public Use
  Company Number: SE-INSYS THERAPEUTICS, INC-INS201905-000361

PATIENT
  Age: 24 Year
  Sex: Male

DRUGS (2)
  1. FURANYLFENTANYL [Suspect]
     Active Substance: FURANYLFENTANYL
  2. FENTANYL. [Suspect]
     Active Substance: FENTANYL
     Indication: PRODUCT USED FOR UNKNOWN INDICATION

REACTIONS (2)
  - Toxicity to various agents [Fatal]
  - Accidental overdose [Fatal]
